FAERS Safety Report 9766694 (Version 3)
Quarter: 2014Q1

REPORT INFORMATION
  Report Type: Spontaneous
  Country: US (occurrence: US)
  Receive Date: 20131217
  Receipt Date: 20140114
  Transmission Date: 20141002
  Serious: No
  Sender: FDA-Public Use
  Company Number: US-BIOGENIDEC-2013BI118314

PATIENT
  Age: 65 Year
  Sex: Male
  Weight: 81 kg

DRUGS (15)
  1. TECFIDERA [Suspect]
     Indication: MULTIPLE SCLEROSIS
     Route: 048
     Dates: start: 20131204
  2. TECFIDERA [Suspect]
     Indication: MULTIPLE SCLEROSIS
     Route: 048
     Dates: start: 20131204
  3. HALCION [Concomitant]
  4. ZOLOFT [Concomitant]
  5. GABAPENTIN [Concomitant]
  6. SIMVASTATIN [Concomitant]
  7. PRILOSEC [Concomitant]
  8. NAMENDA [Concomitant]
  9. MOBIC [Concomitant]
  10. VITAMIN D3 [Concomitant]
  11. ARICEPT [Concomitant]
  12. CALCIUM [Concomitant]
  13. ASPIRIN [Concomitant]
  14. IMODIUM [Concomitant]
  15. CRANBERRY [Concomitant]

REACTIONS (4)
  - Mobility decreased [Not Recovered/Not Resolved]
  - Diarrhoea [Not Recovered/Not Resolved]
  - Vomiting [Not Recovered/Not Resolved]
  - Nausea [Unknown]
